FAERS Safety Report 13988923 (Version 1)
Quarter: 2017Q3

REPORT INFORMATION
  Report Type: Spontaneous
  Country: US (occurrence: US)
  Receive Date: 20170919
  Receipt Date: 20170919
  Transmission Date: 20171128
  Serious: Yes (Other)
  Sender: FDA-Public Use
  Company Number: None

PATIENT
  Age: 35 Year
  Sex: Female
  Weight: 76.5 kg

DRUGS (2)
  1. SUMATRIPTAN. [Concomitant]
     Active Substance: SUMATRIPTAN
  2. EXPIGMENT %4 KREM 30G [Suspect]
     Active Substance: HYDROQUINONE
     Indication: CHLOASMA
     Route: 061
     Dates: start: 20170911, end: 20170911

REACTIONS (1)
  - Metal poisoning [None]

NARRATIVE: CASE EVENT DATE: 20170911
